FAERS Safety Report 5995878-4 (Version None)
Quarter: 2008Q4

REPORT INFORMATION
  Report Type: 
  Country: None (occurrence: None)
  Receive Date: 20081212
  Receipt Date: 20081202
  Transmission Date: 20090506
  Serious: Yes (Other)
  Sender: FDA-Public Use
  Company Number: NL-PFIZER INC-2008151693

PATIENT

DRUGS (1)
  1. DIFLUCAN [Suspect]
     Indication: VULVOVAGINAL CANDIDIASIS
     Dosage: 50 MG, 1X/DAY
     Route: 048
     Dates: start: 19990131, end: 19990131

REACTIONS (1)
  - DRUG ERUPTION [None]
